FAERS Safety Report 5279910-1 (Version None)
Quarter: 2007Q1

REPORT INFORMATION
  Report Type: 
  Country: None (occurrence: None)
  Receive Date: 20070326
  Receipt Date: 20070326
  Transmission Date: 20070707
  Serious: Yes (Other)
  Sender: FDA-Public Use
  Company Number: None

PATIENT
  Age: 5 Year
  Sex: Male
  Weight: 23.1334 kg

DRUGS (1)
  1. AMOXICILLIN + CLAVULANATE POTASSIUM [Suspect]
     Indication: EAR INFECTION
     Dosage: 1.5 TSP TWICE DAILY PO
     Route: 048
     Dates: start: 20070308, end: 20070312

REACTIONS (3)
  - COUGH [None]
  - PRURITUS [None]
  - URTICARIA GENERALISED [None]
